FAERS Safety Report 6517824-7 (Version None)
Quarter: 2009Q4

REPORT INFORMATION
  Report Type: 
  Country: None (occurrence: None)
  Receive Date: 20091218
  Receipt Date: 20091203
  Transmission Date: 20100525
  Serious: No
  Sender: FDA-Public Use
  Company Number: TPA2009A04119

PATIENT

DRUGS (1)
  1. PREVACID [Suspect]
     Dosage: 30 MG

REACTIONS (1)
  - DIPLOPIA [None]
